FAERS Safety Report 6998328-4 (Version None)
Quarter: 2010Q3

REPORT INFORMATION
  Report Type: 
  Country: None (occurrence: None)
  Receive Date: 20100920
  Receipt Date: 20100907
  Transmission Date: 20110219
  Serious: Yes (Hospitalization)
  Sender: FDA-Public Use
  Company Number: CA-JNJFOC-20100902623

PATIENT
  Sex: Male

DRUGS (8)
  1. SIMPONI [Suspect]
     Indication: ANKYLOSING SPONDYLITIS
     Route: 058
  2. SIMPONI [Suspect]
     Route: 058
  3. SIMPONI [Suspect]
     Route: 058
  4. SIMPONI [Suspect]
     Route: 058
  5. SIMPONI [Suspect]
     Route: 058
  6. SIMPONI [Suspect]
     Route: 058
  7. SIMPONI [Suspect]
     Route: 058
  8. SIMPONI [Suspect]
     Route: 058

REACTIONS (4)
  - ASTHENIA [None]
  - DIZZINESS [None]
  - MONOPLEGIA [None]
  - VOMITING [None]
